FAERS Safety Report 23638492 (Version 1)
Quarter: 2024Q1

REPORT INFORMATION
  Report Type: Report from Study
  Country: CA (occurrence: CA)
  Receive Date: 20240315
  Receipt Date: 20240315
  Transmission Date: 20240410
  Serious: Yes (Hospitalization)
  Sender: FDA-Public Use
  Company Number: CA-Amarin Pharma  Inc-2024AMR000108

PATIENT
  Age: 90 Year
  Sex: Male

DRUGS (1)
  1. VASCEPA [Suspect]
     Active Substance: ICOSAPENT ETHYL
     Indication: Cardiovascular event prophylaxis
     Route: 048
     Dates: start: 202204, end: 2022

REACTIONS (3)
  - COVID-19 [Unknown]
  - Arterial therapeutic procedure [Unknown]
  - Fall [Unknown]

NARRATIVE: CASE EVENT DATE: 20220601
